FAERS Safety Report 6024143-4 (Version None)
Quarter: 2008Q4

REPORT INFORMATION
  Report Type: 
  Country: None (occurrence: None)
  Receive Date: 20081224
  Receipt Date: 20081218
  Transmission Date: 20090506
  Serious: Yes (Death)
  Sender: FDA-Public Use
  Company Number: 2008002988

PATIENT
  Age: 67 Year
  Sex: Male
  Weight: 60 kg

DRUGS (9)
  1. ERLOTINIB           (ERLOTINIB) [Suspect]
     Indication: NON-SMALL CELL LUNG CANCER
     Dosage: (150 MG,QD), ORAL
     Route: 048
     Dates: start: 20080819
  2. SUNITINIB/PLACEBO [Suspect]
     Indication: NON-SMALL CELL LUNG CANCER
     Dosage: (37.5 MG,QD), ORAL
     Route: 048
     Dates: start: 20080819
  3. HYDROCORTISONE [Concomitant]
  4. TRANEXAMIC  ACID (TRANEXAMIC ACID) [Concomitant]
  5. CIPROFLOXACIN [Concomitant]
  6. BROMHEXINE (BROMHEXINE) [Concomitant]
  7. MEGESTROL ACETATE [Concomitant]
  8. OXYCODONE HCL [Concomitant]
  9. MAGNESIUM OXIDE (MAGNESIUM OXIDE) [Concomitant]

REACTIONS (10)
  - ACUTE MYOCARDIAL INFARCTION [None]
  - BRONCHIAL SECRETION RETENTION [None]
  - CHILLS [None]
  - CONDITION AGGRAVATED [None]
  - DYSPNOEA [None]
  - METASTASES TO LUNG [None]
  - OBSTRUCTIVE AIRWAYS DISORDER [None]
  - PRODUCTIVE COUGH [None]
  - PULMONARY EMBOLISM [None]
  - RESPIRATORY ARREST [None]
